FAERS Safety Report 5626979-8 (Version None)
Quarter: 2008Q1

REPORT INFORMATION
  Report Type: 
  Country: None (occurrence: None)
  Receive Date: 20080212
  Receipt Date: 20080128
  Transmission Date: 20080703
  Serious: Yes (Other)
  Sender: FDA-Public Use
  Company Number: B0506799A

PATIENT
  Age: 31 Year
  Sex: Female

DRUGS (7)
  1. FLUTICASONE PROPIONATE [Suspect]
     Indication: ASTHMA
     Dosage: INHALED
     Route: 055
  2. CETIRIZINE HCL [Suspect]
  3. ALBUTEROL SULFATE [Suspect]
  4. PREDNISOLONE [Suspect]
  5. FENOTEROL (FORMULATION UNKNOWN) (FENOTEROL) [Suspect]
  6. ZINACEF [Suspect]
  7. AMINOPHYLLINE [Suspect]

REACTIONS (2)
  - ABORTION INDUCED [None]
  - DRUG EXPOSURE DURING PREGNANCY [None]
